FAERS Safety Report 16400173 (Version 1)
Quarter: 2019Q2

REPORT INFORMATION
  Report Type: Spontaneous
  Country: US (occurrence: US)
  Receive Date: 20190606
  Receipt Date: 20190606
  Transmission Date: 20190711
  Serious: No
  Sender: FDA-Public Use
  Company Number: US-ALLERGAN-1831755US

PATIENT
  Sex: Female

DRUGS (4)
  1. CHLOROMYCETIN [Concomitant]
     Active Substance: CHLORAMPHENICOL
     Dosage: 500 MG, UNK
  2. KYBELLA [Suspect]
     Active Substance: DEOXYCHOLIC ACID
     Indication: FAT TISSUE INCREASED
     Dosage: ACTUAL: 4 CCS, 2 VIALS
     Route: 058
     Dates: start: 20170628, end: 20170628
  3. KYBELLA [Suspect]
     Active Substance: DEOXYCHOLIC ACID
     Dosage: UNK
     Route: 058
     Dates: start: 201705, end: 201705
  4. GRID [Concomitant]
     Indication: FAT TISSUE INCREASED

REACTIONS (3)
  - Injection site swelling [Not Recovered/Not Resolved]
  - Induration [Not Recovered/Not Resolved]
  - Injection site scar [Not Recovered/Not Resolved]
